FAERS Safety Report 10957219 (Version 1)
Quarter: 2015Q1

REPORT INFORMATION
  Report Type: Spontaneous
  Country: US (occurrence: None)
  Receive Date: 20150226
  Receipt Date: 20150226
  Transmission Date: 20150721
  Serious: Yes (Hospitalization)
  Sender: FDA-Public Use
  Company Number: TAP2005Q00908

PATIENT
  Age: 07 Month
  Sex: Female
  Weight: 8.16 kg

DRUGS (1)
  1. PREVACID [Suspect]
     Active Substance: LANSOPRAZOLE
     Indication: GASTROOESOPHAGEAL REFLUX DISEASE
     Dosage: 15 MG IN AM, 7.5 MG IN PM/G-TUBE, GASTROSTOMY TUBE
     Dates: start: 200410, end: 200505

REACTIONS (2)
  - Drug ineffective [None]
  - Dehydration [None]

NARRATIVE: CASE EVENT DATE: 200410
